FAERS Safety Report 10952839 (Version 1)
Quarter: 2015Q1

REPORT INFORMATION
  Report Type: Spontaneous
  Country: US (occurrence: None)
  Receive Date: 20150324
  Receipt Date: 20150324
  Transmission Date: 20150721
  Serious: No
  Sender: FDA-Public Use
  Company Number: None

PATIENT
  Age: 75 Year
  Sex: Female

DRUGS (1)
  1. PROLIA [Suspect]
     Active Substance: DENOSUMAB
     Dosage: Q6M
     Route: 058
     Dates: start: 20140922, end: 20150320

REACTIONS (2)
  - Malaise [None]
  - Pneumonia [None]

NARRATIVE: CASE EVENT DATE: 20150301
